FAERS Safety Report 11517044 (Version 1)
Quarter: 2015Q3

REPORT INFORMATION
  Report Type: Spontaneous
  Country: DE (occurrence: DE)
  Receive Date: 20150917
  Receipt Date: 20150917
  Transmission Date: 20151125
  Serious: Yes (Hospitalization, Other)
  Sender: FDA-Public Use
  Company Number: DE-BAYER-2015-415772

PATIENT
  Age: 26 Year
  Sex: Female

DRUGS (1)
  1. JAYDESS [Suspect]
     Active Substance: LEVONORGESTREL
     Dosage: 14 MCG/24HR, CONT
     Route: 015
     Dates: start: 201502, end: 201508

REACTIONS (7)
  - Nausea [None]
  - Pelvic pain [None]
  - Abdominal pain lower [None]
  - Salpingo-oophoritis [None]
  - Cardiovascular disorder [None]
  - Procedural pain [None]
  - Ovarian cyst [Recovered/Resolved]

NARRATIVE: CASE EVENT DATE: 201502
